FAERS Safety Report 8511597-4 (Version None)
Quarter: 2012Q3

REPORT INFORMATION
  Report Type: 
  Country: None (occurrence: None)
  Receive Date: 20120716
  Receipt Date: 20120710
  Transmission Date: 20120928
  Serious: No
  Sender: FDA-Public Use
  Company Number: PHEH2012US013734

PATIENT
  Sex: Female
  Weight: 66.667 kg

DRUGS (2)
  1. TASIGNA [Suspect]
     Dosage: 300 MG, BID
     Route: 048
  2. PREDNISONE [Concomitant]
     Dosage: 10 MG, UNK
     Route: 048

REACTIONS (1)
  - RASH [None]
